FAERS Safety Report 17829680 (Version 1)
Quarter: 2020Q2

REPORT INFORMATION
  Report Type: Spontaneous
  Country: BR (occurrence: BR)
  Receive Date: 20200527
  Receipt Date: 20200527
  Transmission Date: 20200714
  Serious: Yes (Other)
  Sender: FDA-Public Use
  Company Number: BR-PFIZER INC-2020204768

PATIENT
  Age: 60 Year
  Sex: Male
  Weight: 77 kg

DRUGS (25)
  1. ZITROMAX [Interacting]
     Active Substance: AZITHROMYCIN
     Indication: COVID-19
     Dosage: 500 MG, 1X/DAY
     Route: 048
     Dates: start: 20200325, end: 20200326
  2. CEFTRIAXONE. [Concomitant]
     Active Substance: CEFTRIAXONE
     Dosage: 1 G, 2X/DAY
     Route: 042
     Dates: start: 20200325, end: 20200327
  3. HEMOFOL [Concomitant]
     Dosage: 5000 IU, 2X/DAY (EVERY 12 HOURS)
     Route: 058
     Dates: start: 20200329, end: 20200405
  4. TREZOR [ROSUVASTATIN CALCIUM] [Concomitant]
     Dosage: UNK
  5. TAZOCIN [Concomitant]
     Active Substance: PIPERACILLIN SODIUM\TAZOBACTAM SODIUM
     Dosage: 2.25 G, 3X/DAY (EVERY 8 HOURS)
     Route: 042
     Dates: start: 20200328, end: 20200330
  6. TAZOCIN [Concomitant]
     Active Substance: PIPERACILLIN SODIUM\TAZOBACTAM SODIUM
     Dosage: 4.5 G, 4X/DAY (EVERY 6HOURS)
     Route: 042
     Dates: start: 20200330, end: 20200404
  7. SODIUM BICARBONATE. [Concomitant]
     Active Substance: SODIUM BICARBONATE
     Dosage: UNK
     Dates: start: 20200329, end: 20200406
  8. METFORMIN [Concomitant]
     Active Substance: METFORMIN HYDROCHLORIDE
     Dosage: UNK
  9. CIS [CISATRACURIUM BESILATE] [Concomitant]
     Dosage: 100 MG, AS NEEDED
     Route: 042
     Dates: start: 20200329, end: 20200405
  10. DORMIRE [MIDAZOLAM HYDROCHLORIDE] [Concomitant]
     Dosage: 100 MG, AS NEEDED
     Route: 042
     Dates: start: 20200327, end: 20200406
  11. TAMIRAM [Concomitant]
     Active Substance: LEVOFLOXACIN
     Dosage: UNK
  12. OSELTAMIVIR [Concomitant]
     Active Substance: OSELTAMIVIR
     Dosage: 75 MG, 2X/DAY
     Route: 048
     Dates: start: 20200325, end: 20200325
  13. VANCOMYCIN HYDROCHLORIDE. [Concomitant]
     Active Substance: VANCOMYCIN HYDROCHLORIDE
     Dosage: 1 G, 1X/DAY
     Route: 042
     Dates: end: 20200403
  14. NEXIUM MUPS [ESOMEPRAZOLE MAGNESIUM] [Concomitant]
     Active Substance: ESOMEPRAZOLE MAGNESIUM
     Dosage: 20 MG, 1X/DAY
     Route: 006
     Dates: start: 20200325, end: 20200405
  15. REUQUINOL [Interacting]
     Active Substance: HYDROXYCHLOROQUINE SULFATE
     Dosage: 400 MG, DAILY (GIVEN IN 2 DIVIDED DOSES EVERY 12 HOURS)
     Route: 006
     Dates: start: 20200327, end: 20200330
  16. VANCOMYCIN HYDROCHLORIDE. [Concomitant]
     Active Substance: VANCOMYCIN HYDROCHLORIDE
     Dosage: 1 G, 2X/DAY (EVERY 12HOURS)
     Route: 042
     Dates: start: 20200327
  17. DOBUTAMINE [Concomitant]
     Active Substance: DOBUTAMINE HYDROCHLORIDE
     Dosage: UNK
     Dates: end: 20200331
  18. ZITROMAX [Suspect]
     Active Substance: AZITHROMYCIN
     Indication: COVID-19
     Dosage: 500 MG, 1X/DAY
     Route: 042
     Dates: start: 20200327, end: 20200401
  19. REUQUINOL [Interacting]
     Active Substance: HYDROXYCHLOROQUINE SULFATE
     Indication: COVID-19
     Dosage: 400 MG, DAILY ((GIVEN IN 2 DIVIDED DOSES EVERY 12 HOURS)
     Route: 048
     Dates: start: 20200325, end: 20200326
  20. HYDROCHLOROTHIAZIDE. [Concomitant]
     Active Substance: HYDROCHLOROTHIAZIDE
     Dosage: UNK
  21. DOPACRIS [Concomitant]
     Dosage: 250 MG, AS NEEDED
     Route: 042
     Dates: start: 20200330, end: 20200330
  22. POTASSIUM CHLORIDE. [Concomitant]
     Active Substance: POTASSIUM CHLORIDE
     Dosage: 40 MG
     Route: 042
     Dates: start: 20200329, end: 20200406
  23. SODIUM CHLORIDE. [Concomitant]
     Active Substance: SODIUM CHLORIDE
     Dosage: UNK
     Dates: start: 20200329, end: 20200404
  24. LIPLESS [Concomitant]
     Active Substance: CIPROFIBRATE
     Dosage: UNK
  25. LOSARTAN. [Concomitant]
     Active Substance: LOSARTAN
     Dosage: UNK

REACTIONS (4)
  - Electrocardiogram QT prolonged [Recovered/Resolved]
  - Product use in unapproved indication [Unknown]
  - Drug interaction [Recovered/Resolved]
  - Off label use [Unknown]

NARRATIVE: CASE EVENT DATE: 20200325
